FAERS Safety Report 4741087-6 (Version None)
Quarter: 2005Q3

REPORT INFORMATION
  Report Type: 
  Country: None (occurrence: None)
  Receive Date: 20050810
  Receipt Date: 20050606
  Transmission Date: 20060218
  Serious: Yes (Hospitalization)
  Sender: FDA-Public Use
  Company Number: FR-ROCHE-406834

PATIENT
  Age: 27 Year
  Sex: Female
  Weight: 56 kg

DRUGS (14)
  1. DACLIZUMAB [Suspect]
     Route: 042
     Dates: start: 20050324, end: 20050324
  2. DACLIZUMAB [Suspect]
     Route: 042
     Dates: start: 20050408, end: 20050408
  3. MYCOPHENOLATE MOFETIL [Suspect]
     Route: 048
     Dates: start: 20050324, end: 20050411
  4. MYCOPHENOLATE MOFETIL [Suspect]
     Route: 048
     Dates: start: 20050412, end: 20050506
  5. MYCOPHENOLATE MOFETIL [Suspect]
     Route: 048
     Dates: start: 20050507, end: 20050508
  6. MYCOPHENOLATE MOFETIL [Suspect]
     Route: 048
     Dates: start: 20050514
  7. CORTANCYL [Suspect]
     Route: 048
     Dates: start: 20050324
  8. CORTANCYL [Suspect]
     Route: 048
  9. CYCLOSPORINE [Suspect]
     Route: 048
     Dates: start: 20050327
  10. PERFALGAN [Concomitant]
     Dates: start: 20050413, end: 20050417
  11. ROCEPHIN [Concomitant]
     Dates: start: 20050401, end: 20050407
  12. OFLOCET [Concomitant]
     Dates: start: 20050419
  13. TOPALGIC [Concomitant]
     Dates: start: 20050414, end: 20050415
  14. DI ANTALVIC [Concomitant]
     Dates: start: 20050413, end: 20050414

REACTIONS (5)
  - CYTOMEGALOVIRUS INFECTION [None]
  - ESCHERICHIA URINARY TRACT INFECTION [None]
  - INFECTION [None]
  - PERITONITIS [None]
  - URINARY TRACT INFECTION ENTEROCOCCAL [None]
